FAERS Safety Report 9801930 (Version 1)
Quarter: 2014Q1

REPORT INFORMATION
  Report Type: Report from Study
  Country: DE (occurrence: DE)
  Receive Date: 20140107
  Receipt Date: 20140107
  Transmission Date: 20141002
  Serious: Yes (Hospitalization)
  Sender: FDA-Public Use
  Company Number: DE-ABBVIE-14P-062-1185321-00

PATIENT
  Age: 58 Year
  Sex: Female
  Weight: 39 kg

DRUGS (4)
  1. HUMIRA [Suspect]
     Indication: CROHN^S DISEASE
     Route: 058
     Dates: start: 20081125, end: 201206
  2. HUMIRA [Suspect]
     Dosage: THERAPY PAUSE DUE TO OPERATION
     Route: 058
     Dates: end: 201308
  3. HUMIRA [Suspect]
     Dosage: THERAPY-BREAKUP
     Route: 058
     Dates: start: 201309, end: 201310
  4. BUDENOFALK [Suspect]
     Indication: CROHN^S DISEASE
     Dosage: 9 MG
     Dates: end: 201308

REACTIONS (4)
  - Ileus [Recovered/Resolved]
  - Intestinal stenosis [Recovered/Resolved]
  - Ileus [Recovered/Resolved]
  - Fistula [Recovered/Resolved with Sequelae]
